FAERS Safety Report 11358262 (Version 1)
Quarter: 2015Q3

REPORT INFORMATION
  Report Type: Spontaneous
  Country: US (occurrence: US)
  Receive Date: 20150803
  Receipt Date: 20150803
  Transmission Date: 20151125
  Serious: No
  Sender: FDA-Public Use
  Company Number: US-ELI_LILLY_AND_COMPANY-US200802003237

PATIENT
  Age: 5 Year
  Sex: Male
  Weight: 23.13 kg

DRUGS (3)
  1. STRATTERA [Suspect]
     Active Substance: ATOMOXETINE HYDROCHLORIDE
     Indication: ASPERGER^S DISORDER
     Dosage: 10 MG, UNK
     Dates: start: 20080107, end: 2008
  2. STRATTERA [Suspect]
     Active Substance: ATOMOXETINE HYDROCHLORIDE
     Dosage: 25 MG, UNK
     Dates: start: 2008, end: 2008
  3. STRATTERA [Suspect]
     Active Substance: ATOMOXETINE HYDROCHLORIDE
     Dosage: 36 MG, UNK
     Dates: start: 2008, end: 20080213

REACTIONS (3)
  - Prescribed overdose [Recovered/Resolved]
  - Aggression [Recovering/Resolving]
  - Drug ineffective [Recovered/Resolved]

NARRATIVE: CASE EVENT DATE: 20080213
